FAERS Safety Report 16563951 (Version 1)
Quarter: 2019Q3

REPORT INFORMATION
  Report Type: Spontaneous
  Country: RU (occurrence: RU)
  Receive Date: 20190712
  Receipt Date: 20190712
  Transmission Date: 20191004
  Serious: Yes (Hospitalization, Other)
  Sender: FDA-Public Use
  Company Number: RU-ADIENNEP-2019AD000350

PATIENT
  Age: 16 Year
  Sex: Female
  Weight: 48 kg

DRUGS (3)
  1. TEPADINA [Suspect]
     Active Substance: THIOTEPA
     Dosage: 460 MG DAILY
     Route: 042
     Dates: start: 20190211, end: 20190211
  2. MYLERAN [Suspect]
     Active Substance: BUSULFAN
     Dosage: 152 MG DAILY
     Route: 042
     Dates: start: 20190211, end: 20190211
  3. FLUDARABINE PHOSPHATE. [Suspect]
     Active Substance: FLUDARABINE PHOSPHATE
     Dosage: 43 MG DAILY
     Route: 042
     Dates: start: 20190211, end: 20190211

REACTIONS (1)
  - Graft versus host disease [Unknown]

NARRATIVE: CASE EVENT DATE: 20190410
